FAERS Safety Report 18416431 (Version 1)
Quarter: 2020Q4

REPORT INFORMATION
  Report Type: Spontaneous
  Country: DK (occurrence: DK)
  Receive Date: 20201022
  Receipt Date: 20201022
  Transmission Date: 20210114
  Serious: Yes (Death, Hospitalization, Other)
  Sender: FDA-Public Use
  Company Number: DK-AMGEN-DNKSP2020168554

PATIENT

DRUGS (14)
  1. PREDNISOLONE. [Concomitant]
     Active Substance: PREDNISOLONE
  2. PROCARBAZINE [Concomitant]
     Active Substance: PROCARBAZINE
  3. BLEOMYCIN [Concomitant]
     Active Substance: BLEOMYCIN SULFATE
  4. MITOXANTRONE [Concomitant]
     Active Substance: MITOXANTRONE HYDROCHLORIDE
     Dosage: 10 MILLIGRAM PER CUBIC METRE, QD
  5. CYCLOPHOSPHAMIDE. [Concomitant]
     Active Substance: CYCLOPHOSPHAMIDE
     Dosage: 3-4 G/M2D 1
  6. DOXORUBICIN [Concomitant]
     Active Substance: DOXORUBICIN
  7. DACARBAZIN [Concomitant]
     Active Substance: DACARBAZINE
  8. FILGRASTIM [Suspect]
     Active Substance: FILGRASTIM
     Indication: NEUTROPENIA
     Dosage: 5 MICROGRAM/KILOGRAM
     Route: 058
  9. CHLORAMBUCIL [Concomitant]
     Active Substance: CHLORAMBUCIL
  10. ETOPOSIDE. [Concomitant]
     Active Substance: ETOPOSIDE
     Dosage: 200 MILLIGRAM PER SQUARE METRE PER DAY
  11. VINCRISTINE [Concomitant]
     Active Substance: VINCRISTINE
  12. VINBLASTINE [Concomitant]
     Active Substance: VINBLASTINE
  13. BICNU [Concomitant]
     Active Substance: CARMUSTINE
     Dosage: 300 MILLIGRAM PER SQUARE METRE PER DAY
  14. MELPHALAN. [Concomitant]
     Active Substance: MELPHALAN
     Dosage: 140 MILLIGRAM PER SQUARE METRE PER DAY D 6

REACTIONS (18)
  - Lymphoma [Fatal]
  - Acute myeloid leukaemia [Fatal]
  - Sudden death [Fatal]
  - Leukaemia [Fatal]
  - Thrombocytopenia [Unknown]
  - Venoocclusive disease [Fatal]
  - Transplant failure [Fatal]
  - Bacteraemia [Fatal]
  - Death [Fatal]
  - Device related infection [Unknown]
  - Hodgkin^s disease [Unknown]
  - Cytopenia [Fatal]
  - Pneumonitis [Fatal]
  - Completed suicide [Fatal]
  - Sepsis [Fatal]
  - Cytogenetic abnormality [Unknown]
  - Myelodysplastic syndrome [Fatal]
  - Toxicity to various agents [Fatal]
